FAERS Safety Report 25081637 (Version 1)
Quarter: 2025Q1

REPORT INFORMATION
  Report Type: Spontaneous
  Country: CN (occurrence: CN)
  Receive Date: 20250316
  Receipt Date: 20250316
  Transmission Date: 20250408
  Serious: Yes (Other)
  Sender: ABBVIE
  Company Number: CN-PFIZER INC-PV202500029820

PATIENT
  Age: 30 Year
  Sex: Female
  Weight: 49 kg

DRUGS (1)
  1. AVIBACTAM SODIUM [Suspect]
     Active Substance: AVIBACTAM SODIUM
     Indication: Infection
     Dosage: 2.5 G, 2X/DAY
     Route: 042
     Dates: start: 20250213, end: 20250221

REACTIONS (1)
  - Muscle twitching [Recovering/Resolving]

NARRATIVE: CASE EVENT DATE: 20250221
